FAERS Safety Report 4550692-1 (Version None)
Quarter: 2004Q4

REPORT INFORMATION
  Report Type: 
  Country: None (occurrence: None)
  Receive Date: 20041217
  Receipt Date: 20041018
  Transmission Date: 20050328
  Serious: No
  Sender: FDA-Public Use
  Company Number: 2004-BP-10421BP(0)

PATIENT
  Age: 73 Year
  Sex: Female

DRUGS (6)
  1. SPIRIVA [Suspect]
     Indication: CHRONIC OBSTRUCTIVE AIRWAYS DISEASE
     Dosage: 18 MCG (18 MCG), IH
     Route: 025
     Dates: start: 20040816, end: 20041003
  2. SALBUTAMOL (SALBUTAMOL) [Concomitant]
  3. ADVAIR (SERETIDE MITE) [Concomitant]
  4. CELEBREX [Concomitant]
  5. ALLEGRA [Concomitant]
  6. NASONEX [Concomitant]

REACTIONS (5)
  - ARTHRALGIA [None]
  - DYSPNOEA EXACERBATED [None]
  - HYPOAESTHESIA [None]
  - MUSCULAR WEAKNESS [None]
  - PAIN IN EXTREMITY [None]
